FAERS Safety Report 7310573-7 (Version None)
Quarter: 2011Q1

REPORT INFORMATION
  Report Type: 
  Country: None (occurrence: None)
  Receive Date: 20110224
  Receipt Date: 20100218
  Transmission Date: 20110831
  Serious: No
  Sender: FDA-Public Use
  Company Number: US-BRISTOL-MYERS SQUIBB COMPANY-14952030

PATIENT
  Age: 56 Year
  Sex: Female

DRUGS (6)
  1. METOPROLOL [Concomitant]
  2. ALEVE [Concomitant]
  3. GLUCOPHAGE [Suspect]
     Indication: INSULIN RESISTANCE
     Dosage: GLUCOPHAGE XR 750 MG 01APR05-1000MG NOTED ON 22DEC05-1000MG(BID) 750MG(31AUG09)
     Route: 048
     Dates: start: 20050401
  4. ASTELIN SPRAY [Concomitant]
     Route: 045
  5. GLUCOPHAGE [Suspect]
     Indication: TYPE 2 DIABETES MELLITUS
     Dosage: GLUCOPHAGE XR 750 MG 01APR05-1000MG NOTED ON 22DEC05-1000MG(BID) 750MG(31AUG09)
     Route: 048
     Dates: start: 20050401
  6. LEVOXYL [Concomitant]
     Route: 048

REACTIONS (3)
  - DRY SKIN [None]
  - FLUID RETENTION [None]
  - RASH [None]
